FAERS Safety Report 9620295 (Version 1)
Quarter: 2013Q4

REPORT INFORMATION
  Report Type: Spontaneous
  Country: None (occurrence: US)
  Receive Date: 20131014
  Receipt Date: 20131014
  Transmission Date: 20140711
  Serious: No
  Sender: FDA-Public Use
  Company Number: US-ALLERGAN-1301927US

PATIENT
  Age: 85 Year
  Sex: Female

DRUGS (1)
  1. ALPHAGAN [Suspect]
     Indication: GLAUCOMA
     Route: 047

REACTIONS (2)
  - Ageusia [Unknown]
  - Dry mouth [Unknown]
